FAERS Safety Report 26155072 (Version 2)
Quarter: 2025Q4

REPORT INFORMATION
  Report Type: Spontaneous
  Country: EU (occurrence: EU)
  Receive Date: 20251215
  Receipt Date: 20251219
  Transmission Date: 20260118
  Serious: Yes (Other)
  Sender: ROCHE
  Company Number: EU-ROCHE-2359358

PATIENT

DRUGS (9)
  1. PERJETA [Suspect]
     Active Substance: PERTUZUMAB
     Indication: Metastatic neoplasm
     Dosage: CONSECUTIVE DATES OF TREATMENT: 30/JUL/2019, 20/AUG/2019, 10/SEP/2019, 01/OCT/2019, 22/OCT/2019, 12/NOV/2019, 03/DEC/2019, 23/DEC/2019, 15/JAN/2020, 28/APR/2020, 19/MAY/2020, 09/JUN/2020, 07/JUL/2020, 28/JUL/2020, 18/AUG/2020, 08/SEP/2020, 29/SEP/2020, 20/OCT/2020, 10/NOV/2020, 01/DEC/2020, 22/DEC/2
     Route: 042
  2. PERJETA [Suspect]
     Active Substance: PERTUZUMAB
     Indication: Neoplasm malignant
     Route: 042
  3. PERJETA [Suspect]
     Active Substance: PERTUZUMAB
     Route: 042
  4. PERJETA [Suspect]
     Active Substance: PERTUZUMAB
     Route: 042
  5. PERJETA [Suspect]
     Active Substance: PERTUZUMAB
     Route: 042
  6. HERCEPTIN [Suspect]
     Active Substance: TRASTUZUMAB
     Indication: Metastatic neoplasm
     Dosage: SUBSEQUENT DOSES ON 04/JAN/2022, 25 JAN/2022, 12/FEB/2022, 08/MAR/2022, 29/MAR/2022, 19/APR/2022, 10/MAY/2022, 31/MAY/2022, 21/JUN/2022, 19/JUL/2022, 09/AUG/2022,, 30/AUG/2022, 20/SEP/2022, 11/OCT/2022, 08/NOV/2022, 29/NOV/2022, 20/DEC/2022, 10/JAN/2023, 31/JAN/2023, 21/FEB/2023, 23/MAR/2023, 11/APR
     Route: 041
  7. HERCEPTIN [Suspect]
     Active Substance: TRASTUZUMAB
     Route: 041
  8. HERCEPTIN [Suspect]
     Active Substance: TRASTUZUMAB
     Route: 041
  9. HERCEPTIN [Suspect]
     Active Substance: TRASTUZUMAB
     Route: 041

REACTIONS (3)
  - Off label use [Unknown]
  - Urinary tract infection [Recovered/Resolved]
  - Ischaemic stroke [Unknown]

NARRATIVE: CASE EVENT DATE: 20200727
